FAERS Safety Report 4599871-8 (Version None)
Quarter: 2005Q1

REPORT INFORMATION
  Report Type: 
  Country: None (occurrence: None)
  Receive Date: 20050304
  Receipt Date: 20050304
  Transmission Date: 20050727
  Serious: No
  Sender: FDA-Public Use
  Company Number: None

PATIENT
  Age: 72 Year
  Sex: Male
  Weight: 70.3075 kg

DRUGS (2)
  1. PREVACID [Suspect]
     Indication: BARRETT'S OESOPHAGUS
     Dosage: 30 MG - ONE/DAY - ORAL
     Route: 048
     Dates: start: 20020418, end: 20020621
  2. PREVACID [Suspect]
     Indication: GASTROOESOPHAGEAL REFLUX DISEASE
     Dosage: 30 MG - ONE/DAY - ORAL
     Route: 048
     Dates: start: 20020418, end: 20020621

REACTIONS (2)
  - GYNAECOMASTIA [None]
  - SCROTAL OEDEMA [None]
